FAERS Safety Report 19705266 (Version 1)
Quarter: 2021Q3

REPORT INFORMATION
  Report Type: Spontaneous
  Country: US (occurrence: US)
  Receive Date: 20210816
  Receipt Date: 20210816
  Transmission Date: 20211014
  Serious: Yes (Hospitalization)
  Sender: FDA-Public Use
  Company Number: None

PATIENT
  Age: 86 Year
  Sex: Female
  Weight: 71.73 kg

DRUGS (13)
  1. CYANOCOBALAMIN 1000MG [Concomitant]
     Dates: start: 20210201
  2. RISPERIDONE 0.25MG [Concomitant]
     Active Substance: RISPERIDONE
     Dates: start: 20210202, end: 20210713
  3. RISPERIDONE 0.5MG [Concomitant]
     Active Substance: RISPERIDONE
     Dates: start: 20210723, end: 20210730
  4. FAMOTIDINE 20MG [Concomitant]
     Active Substance: FAMOTIDINE
     Dates: start: 20210602
  5. TRULICITY [Concomitant]
     Active Substance: DULAGLUTIDE
     Dates: start: 20210721
  6. VISTARIL 25MG [Concomitant]
     Dates: start: 20210722, end: 20210730
  7. OLANZAPINE 5MG [Concomitant]
     Active Substance: OLANZAPINE
     Dates: start: 20210804
  8. ATIVAN 0.5MG [Concomitant]
     Dates: start: 20210806
  9. REGEN?COV [Suspect]
     Active Substance: CASIRIVIMAB\IMDEVIMAB
     Indication: SARS-COV-2 TEST POSITIVE
     Dosage: ?          OTHER FREQUENCY:ONE TIME;?
     Route: 041
     Dates: start: 20210811, end: 20210811
  10. SENNA PLUS 8.6?50MG [Concomitant]
     Dates: start: 20210308
  11. LOPERAMIDE 2MG [Concomitant]
     Active Substance: LOPERAMIDE
     Dates: start: 20210524
  12. FLUVOXAMINE 25MG [Concomitant]
     Dates: start: 20210717
  13. METOPROLOL SUCCINATE 25MG [Concomitant]
     Active Substance: METOPROLOL SUCCINATE
     Dates: start: 20210201

REACTIONS (4)
  - Aphasia [None]
  - Hypophagia [None]
  - Seizure [None]
  - Disorientation [None]

NARRATIVE: CASE EVENT DATE: 20210811
